FAERS Safety Report 5609607-7 (Version None)
Quarter: 2008Q1

REPORT INFORMATION
  Report Type: 
  Country: None (occurrence: None)
  Receive Date: 20080131
  Receipt Date: 20080125
  Transmission Date: 20080703
  Serious: Yes (Hospitalization)
  Sender: FDA-Public Use
  Company Number: A0705485A

PATIENT
  Age: 65 Year
  Sex: Female

DRUGS (5)
  1. PAXIL CR [Suspect]
     Indication: PANIC DISORDER
     Dosage: 25MG PER DAY
     Route: 048
     Dates: start: 19980101
  2. VITAMIN B [Concomitant]
  3. COUMADIN [Concomitant]
  4. PRILOSEC [Concomitant]
  5. HAIR RESTORER [Concomitant]

REACTIONS (7)
  - ALOPECIA [None]
  - ANAEMIA [None]
  - HIATUS HERNIA [None]
  - PRURITUS [None]
  - STAPHYLOCOCCAL INFECTION [None]
  - THROMBOSIS [None]
  - VITAMIN B COMPLEX DEFICIENCY [None]
